FAERS Safety Report 13023611 (Version 2)
Quarter: 2016Q4

REPORT INFORMATION
  Report Type: Report from Study
  Country: US (occurrence: US)
  Receive Date: 20161213
  Receipt Date: 20161230
  Transmission Date: 20170207
  Serious: No
  Sender: FDA-Public Use
  Company Number: US-AMGEN-USASL2016175210

PATIENT
  Age: 45 Year
  Sex: Female

DRUGS (2)
  1. BAND AID [Suspect]
     Active Substance: DEVICE
     Indication: PRODUCT USED FOR UNKNOWN INDICATION
     Route: 065
  2. ENBREL [Suspect]
     Active Substance: ETANERCEPT
     Indication: PSORIATIC ARTHROPATHY
     Dosage: 50 MG, UNK
     Route: 065
     Dates: start: 2016

REACTIONS (9)
  - Injection site recall reaction [Recovering/Resolving]
  - Injection site pain [Recovering/Resolving]
  - Injection site erythema [Unknown]
  - Injection site urticaria [Recovering/Resolving]
  - Injection site swelling [Recovered/Resolved]
  - Injection site inflammation [Unknown]
  - Injection site macule [Recovered/Resolved]
  - Injection site pruritus [Unknown]
  - Injection site papule [Unknown]

NARRATIVE: CASE EVENT DATE: 2016
